FAERS Safety Report 6713687-5 (Version None)
Quarter: 2010Q2

REPORT INFORMATION
  Report Type: 
  Country: None (occurrence: None)
  Receive Date: 20100506
  Receipt Date: 20100504
  Transmission Date: 20101027
  Serious: Yes (Death, Hospitalization)
  Sender: FDA-Public Use
  Company Number: US-SANOFI-AVENTIS-2010SA006989

PATIENT
  Age: 68 Year
  Sex: Male
  Weight: 83.9 kg

DRUGS (14)
  1. OXALIPLATIN [Suspect]
     Route: 041
     Dates: start: 20090325, end: 20090325
  2. OXALIPLATIN [Suspect]
     Route: 041
     Dates: start: 20090506, end: 20090506
  3. EPIRUBICIN [Suspect]
     Route: 042
     Dates: start: 20090325, end: 20090325
  4. EPIRUBICIN [Suspect]
     Route: 042
     Dates: start: 20090415, end: 20090415
  5. EPIRUBICIN [Suspect]
     Route: 042
     Dates: start: 20090506, end: 20090506
  6. FLUOROURACIL [Suspect]
     Route: 042
     Dates: start: 20090325, end: 20090325
  7. FLUOROURACIL [Suspect]
     Route: 042
     Dates: start: 20090520, end: 20090520
  8. FLUOROURACIL [Suspect]
     Route: 042
     Dates: start: 20090824, end: 20090824
  9. FLUOROURACIL [Suspect]
     Route: 042
     Dates: start: 20090828, end: 20090828
  10. CISPLATIN [Suspect]
     Route: 041
     Dates: start: 20090824, end: 20090824
  11. CISPLATIN [Suspect]
     Route: 041
     Dates: start: 20090828, end: 20090828
  12. AVANDAMET [Concomitant]
     Dosage: 4 MG/1000 MG
     Route: 048
  13. OXYCODONE HCL [Concomitant]
     Indication: PAIN
     Route: 048
  14. METOPROLOL [Concomitant]
     Route: 048

REACTIONS (3)
  - ASCITES [None]
  - HEPATIC FAILURE [None]
  - NODULAR REGENERATIVE HYPERPLASIA [None]
